FAERS Safety Report 7687009-X (Version None)
Quarter: 2011Q3

REPORT INFORMATION
  Report Type: 
  Country: None (occurrence: None)
  Receive Date: 20110816
  Receipt Date: 20110808
  Transmission Date: 20111222
  Serious: Yes (Hospitalization)
  Sender: FDA-Public Use
  Company Number: JP-ABBOTT-11P-087-0708337-00

PATIENT
  Age: 74 Year
  Sex: Male
  Weight: 41 kg

DRUGS (9)
  1. ANPLAG [Suspect]
     Indication: DISEASE COMPLICATION
     Route: 048
  2. AROTINOLOL HYDROCHLORIDE [Suspect]
     Indication: DISEASE COMPLICATION
     Route: 048
  3. URIEF [Suspect]
     Indication: DISEASE COMPLICATION
     Route: 048
  4. ETHAMBUTOL HYDROCHLORIDE [Suspect]
     Indication: ATYPICAL MYCOBACTERIAL INFECTION
     Dates: start: 20091221, end: 20100702
  5. NORVASC [Suspect]
     Indication: DISEASE COMPLICATION
     Route: 048
  6. RIFAMPICIN [Suspect]
     Indication: ATYPICAL MYCOBACTERIAL INFECTION
     Dates: start: 20091221, end: 20100702
  7. ASPIRIN [Suspect]
     Indication: DISEASE COMPLICATION
     Route: 048
  8. PLETAL [Suspect]
     Indication: DISEASE COMPLICATION
     Route: 048
  9. CLARITHROMYCIN [Suspect]
     Indication: ATYPICAL MYCOBACTERIAL INFECTION
     Route: 048
     Dates: start: 20091221, end: 20100702

REACTIONS (4)
  - DECREASED APPETITE [None]
  - WEIGHT DECREASED [None]
  - PRURITUS [None]
  - MALAISE [None]
